FAERS Safety Report 7580489-X (Version None)
Quarter: 2011Q2

REPORT INFORMATION
  Report Type: 
  Country: None (occurrence: None)
  Receive Date: 20110629
  Receipt Date: 20110608
  Transmission Date: 20111010
  Serious: Yes (Hospitalization, Congenital Anomaly)
  Sender: FDA-Public Use
  Company Number: A0930055A

PATIENT
  Sex: Male
  Weight: 2.5 kg

DRUGS (6)
  1. PAXIL [Suspect]
     Indication: DEPRESSION
     Dosage: 20MG PER DAY
     Route: 064
     Dates: start: 19980128
  2. BACTRIM [Concomitant]
     Dates: end: 19980310
  3. TAGAMET [Concomitant]
  4. MACROBID [Concomitant]
     Route: 064
     Dates: start: 19980401
  5. PRENATAL VITAMINS [Concomitant]
  6. CIPROFLOXACIN [Concomitant]
     Dates: start: 19980310

REACTIONS (5)
  - DRUG EXPOSURE DURING PREGNANCY [None]
  - PERSISTENT FOETAL CIRCULATION [None]
  - PATENT DUCTUS ARTERIOSUS [None]
  - ATRIAL SEPTAL DEFECT [None]
  - NEONATAL RESPIRATORY DISTRESS SYNDROME [None]
